FAERS Safety Report 9098014 (Version 1)
Quarter: 2013Q1

REPORT INFORMATION
  Report Type: Spontaneous
  Country: US (occurrence: US)
  Receive Date: 20130212
  Receipt Date: 20130212
  Transmission Date: 20140127
  Serious: Yes (Other)
  Sender: FDA-Public Use
  Company Number: US-ROCHE-1189646

PATIENT
  Age: 79 Year
  Sex: Male

DRUGS (2)
  1. RITUXAN [Suspect]
     Indication: WALDENSTROM^S MACROGLOBULINAEMIA
     Route: 065
     Dates: start: 2004, end: 2006
  2. FLUDARABINE [Concomitant]
     Indication: WALDENSTROM^S MACROGLOBULINAEMIA

REACTIONS (8)
  - Splenomegaly [Unknown]
  - Pleural effusion [Unknown]
  - Pleural effusion [Unknown]
  - Lymphadenopathy [Unknown]
  - Hypogammaglobulinaemia [Unknown]
  - Dyspnoea [Unknown]
  - Pericardial fibrosis [Unknown]
  - Cardiac tamponade [Unknown]
